FAERS Safety Report 24594131 (Version 1)
Quarter: 2024Q4

REPORT INFORMATION
  Report Type: Spontaneous
  Country: US (occurrence: None)
  Receive Date: 20241108
  Receipt Date: 20241108
  Transmission Date: 20250114
  Serious: No
  Sender: Public
  Company Number: None

PATIENT
  Age: 45 Year
  Sex: Female

DRUGS (10)
  1. MIRENA [Suspect]
     Active Substance: LEVONORGESTREL
  2. MINOXIDIL [Concomitant]
     Active Substance: MINOXIDIL
  3. CLONAZEPAM [Concomitant]
     Active Substance: CLONAZEPAM
  4. Prebiotic [Concomitant]
  5. PROBIOTICS NOS [Concomitant]
     Active Substance: PROBIOTICS NOS
  6. UNSPECIFIED INGREDIENT [Concomitant]
     Active Substance: UNSPECIFIED INGREDIENT
  7. b-12/folate [Concomitant]
  8. ZINC [Concomitant]
     Active Substance: ZINC
  9. fatty 15 [Concomitant]
  10. CANNABIDIOL [Concomitant]
     Active Substance: CANNABIDIOL

REACTIONS (7)
  - Complication associated with device [None]
  - Flatulence [None]
  - Dyspepsia [None]
  - Nausea [None]
  - Diarrhoea [None]
  - Food intolerance [None]
  - Impaired quality of life [None]

NARRATIVE: CASE EVENT DATE: 20241107
